FAERS Safety Report 16143951 (Version 1)
Quarter: 2019Q2

REPORT INFORMATION
  Report Type: Spontaneous
  Country: FR (occurrence: FR)
  Receive Date: 20190401
  Receipt Date: 20190401
  Transmission Date: 20190711
  Serious: Yes (Hospitalization)
  Sender: FDA-Public Use
  Company Number: PHHY2019FR062935

PATIENT
  Age: 73 Year
  Sex: Female
  Weight: 64 kg

DRUGS (4)
  1. DICLOFENAC [Suspect]
     Active Substance: DICLOFENAC
     Indication: PAIN
     Dosage: 1 DF, QD
     Route: 003
     Dates: start: 201812, end: 20190122
  2. ATACAND [Suspect]
     Active Substance: CANDESARTAN CILEXETIL
     Indication: CHRONIC KIDNEY DISEASE
     Dosage: 1 DF, QD
     Route: 048
     Dates: start: 201207, end: 20190122
  3. TENOFOVIR DISOPROXIL [Suspect]
     Active Substance: TENOFOVIR DISOPROXIL
     Indication: CHRONIC HEPATITIS B
     Dosage: 245 MG, FOR 3 DAY
     Route: 048
     Dates: start: 2013
  4. FUROSEMIDE. [Suspect]
     Active Substance: FUROSEMIDE
     Indication: CHRONIC KIDNEY DISEASE
     Dosage: 100 MG, QD
     Route: 048
     Dates: start: 201207, end: 20190122

REACTIONS (1)
  - Acute kidney injury [Recovering/Resolving]

NARRATIVE: CASE EVENT DATE: 20190123
